FAERS Safety Report 9765088 (Version 1)
Quarter: 2013Q4

REPORT INFORMATION
  Report Type: Spontaneous
  Country: US (occurrence: None)
  Receive Date: 20131213
  Receipt Date: 20131213
  Transmission Date: 20140711
  Serious: Yes (Other)
  Sender: FDA-Public Use
  Company Number: 2013SA032316

PATIENT
  Age: 16 Year
  Sex: Female

DRUGS (1)
  1. ICY HOT POWER GEL / UNKNOWN / UNKNOWN [Suspect]
     Indication: MUSCLE SPASMS
     Route: 061

REACTIONS (6)
  - Thermal burn [None]
  - Muscle spasms [None]
  - Pain [None]
  - Discomfort [None]
  - Skin discolouration [None]
  - Hyperaesthesia [None]
